FAERS Safety Report 4380441-1 (Version None)
Quarter: 2004Q2

REPORT INFORMATION
  Report Type: 
  Country: None (occurrence: None)
  Receive Date: 20040614
  Receipt Date: 20040531
  Transmission Date: 20050107
  Serious: Yes (Disabling)
  Sender: FDA-Public Use
  Company Number: 2004210880JP

PATIENT
  Age: 25 Year
  Sex: Male
  Weight: 63.3 kg

DRUGS (14)
  1. EPIRUBICIN [Suspect]
     Indication: HEPATIC NEOPLASM MALIGNANT
     Dosage: 500 MG, QD, INTRA-ARTERIAL
     Route: 013
     Dates: start: 20030514, end: 20030514
  2. VOLTAREN [Suspect]
     Indication: PAIN
     Dosage: PRN, RECTAL
     Route: 054
     Dates: start: 20030515, end: 20030602
  3. FAMOTIDINE [Suspect]
     Indication: PROPHYLAXIS AGAINST GASTROINTESTINAL ULCER
     Dosage: 20 MG, QD, ORAL
     Route: 048
     Dates: start: 20030517, end: 20030605
  4. PANSPORIN (CEFOTIAM HYDROCHLORIDE) [Suspect]
     Indication: INFECTION
     Dosage: 1 G, BID, IV
     Route: 042
     Dates: start: 20030519, end: 20030530
  5. LIPIODOL (IODIZED OIL) [Concomitant]
  6. SPONGEL [Concomitant]
  7. BOSMIN (EPINEPHRINE HYDROCHLORIDE) [Concomitant]
  8. LEPETAN (BUPRENORPHINE HYDROCHLORIDE) [Concomitant]
  9. STRONG NEO-MINOPHAGEN C (GLYCYRRHIZIC ACID, AMINOACETIC ACID, CYSTEINE [Concomitant]
  10. TATHION (GLUTATHIONE) [Concomitant]
  11. LENDORM [Concomitant]
  12. IOPAMIRON (IOPAMIDOL) [Concomitant]
  13. IOHEXOL [Concomitant]
  14. MAGNEVIST [Concomitant]

REACTIONS (10)
  - ARTERIOVENOUS FISTULA, ACQUIRED [None]
  - ARTHRALGIA [None]
  - DEHYDRATION [None]
  - HEPATIC NEOPLASM MALIGNANT [None]
  - INFECTION [None]
  - METASTASES TO GASTROINTESTINAL TRACT [None]
  - OEDEMA PERIPHERAL [None]
  - PAIN IN EXTREMITY [None]
  - POST PROCEDURAL PAIN [None]
  - RHABDOMYOLYSIS [None]
